FAERS Safety Report 7610635-0 (Version None)
Quarter: 2011Q3

REPORT INFORMATION
  Report Type: 
  Country: None (occurrence: None)
  Receive Date: 20110715
  Receipt Date: 20110705
  Transmission Date: 20111222
  Serious: Yes (Other)
  Sender: FDA-Public Use
  Company Number: US-BAYER-201023525NA

PATIENT
  Age: 35 Year
  Sex: Female

DRUGS (5)
  1. PRENATAL VITAMINS [Concomitant]
     Indication: PREGNANCY
  2. BETASERON [Suspect]
     Indication: RELAPSING-REMITTING MULTIPLE SCLEROSIS
     Dosage: UNK ?G, UNK
     Route: 058
     Dates: start: 20070830, end: 20090207
  3. BETASERON [Suspect]
     Route: 058
     Dates: start: 20090221, end: 20100523
  4. RHOGAM [Concomitant]
     Indication: RHESUS ANTIBODIES NEGATIVE
     Dosage: UNK
     Dates: start: 20101020, end: 20101020
  5. P-GEL NOS [Concomitant]
     Indication: LABOUR STIMULATION

REACTIONS (1)
  - NO ADVERSE EVENT [None]
